FAERS Safety Report 7031961-2 (Version None)
Quarter: 2010Q4

REPORT INFORMATION
  Report Type: 
  Country: None (occurrence: None)
  Receive Date: 20101007
  Receipt Date: 20100929
  Transmission Date: 20110411
  Serious: Yes (Other)
  Sender: FDA-Public Use
  Company Number: GB-TEVA-250313ISR

PATIENT
  Age: 88 Year
  Sex: Male

DRUGS (2)
  1. WARFARIN SODIUM [Suspect]
     Indication: ATRIAL FIBRILLATION
  2. RIVASTIGMINE [Interacting]
     Route: 048
     Dates: start: 20100903, end: 20100917

REACTIONS (3)
  - CONTUSION [None]
  - DRUG INTERACTION [None]
  - EPISTAXIS [None]
